FAERS Safety Report 17869518 (Version 1)
Quarter: 2020Q2

REPORT INFORMATION
  Report Type: Report from Study
  Country: US (occurrence: US)
  Receive Date: 20200608
  Receipt Date: 20200608
  Transmission Date: 20200714
  Serious: Yes (Hospitalization, Other)
  Sender: FDA-Public Use
  Company Number: US-ROCHE-2610857

PATIENT
  Age: 49 Year
  Sex: Male
  Weight: 86.26 kg

DRUGS (2)
  1. NEUROTIN [GABAPENTIN] [Concomitant]
     Indication: PAIN
     Route: 048
  2. OCREVUS [Suspect]
     Active Substance: OCRELIZUMAB
     Indication: PRIMARY PROGRESSIVE MULTIPLE SCLEROSIS
     Route: 042

REACTIONS (7)
  - Hydrocele [Not Recovered/Not Resolved]
  - Palpitations [Unknown]
  - Furuncle [Not Recovered/Not Resolved]
  - Staphylococcal infection [Recovered/Resolved]
  - Pruritus [Recovered/Resolved]
  - Cholecystitis infective [Recovered/Resolved]
  - Therapeutic response shortened [Not Recovered/Not Resolved]

NARRATIVE: CASE EVENT DATE: 2019
